FAERS Safety Report 23808928 (Version 1)
Quarter: 2024Q2

REPORT INFORMATION
  Report Type: Spontaneous
  Country: US (occurrence: None)
  Receive Date: 20240501
  Receipt Date: 20240501
  Transmission Date: 20240716
  Serious: Yes (Life-Threatening, Hospitalization)
  Sender: FDA-Public Use
  Company Number: None

PATIENT
  Age: 73 Year
  Sex: Male

DRUGS (1)
  1. MEROPENEM [Suspect]
     Active Substance: MEROPENEM
     Indication: Urinary tract infection
     Dates: start: 20221230, end: 20221230

REACTIONS (6)
  - Dizziness [None]
  - Headache [None]
  - Pruritus [None]
  - Rash [None]
  - Seizure [None]
  - Tachycardia [None]

NARRATIVE: CASE EVENT DATE: 20221230
